FAERS Safety Report 6660621-2 (Version None)
Quarter: 2010Q1

REPORT INFORMATION
  Report Type: 
  Country: None (occurrence: None)
  Receive Date: 20100331
  Receipt Date: 20100324
  Transmission Date: 20100710
  Serious: Yes (Life-Threatening, Disabling, Other)
  Sender: FDA-Public Use
  Company Number: DE-ASTRAZENECA-2010SE10340

PATIENT
  Age: 25538 Day
  Sex: Female
  Weight: 90 kg

DRUGS (2)
  1. ARIMIDEX [Suspect]
     Indication: BREAST CANCER
     Route: 048
     Dates: start: 20071210, end: 20081015
  2. ARIMIDEX [Suspect]
     Indication: BREAST CANCER STAGE I
     Route: 048
     Dates: start: 20071210, end: 20081015

REACTIONS (1)
  - MUSCULAR WEAKNESS [None]
